FAERS Safety Report 12755590 (Version 1)
Quarter: 2016Q3

REPORT INFORMATION
  Report Type: Spontaneous
  Country: DE (occurrence: DE)
  Receive Date: 20160916
  Receipt Date: 20160916
  Transmission Date: 20161109
  Serious: Yes (Hospitalization, Other)
  Sender: FDA-Public Use
  Company Number: DE-TEVA-691016GER

PATIENT
  Age: 82 Year
  Sex: Male

DRUGS (2)
  1. MCP-RATIOPHARM SF 10 MG/2 ML INJEKTIONSLOESUNG [Suspect]
     Active Substance: METOCLOPRAMIDE
     Indication: SUBILEUS
     Dosage: 40 MILLIGRAM DAILY; 40MG/DAY; 10MG IN THE MORNING AND 30MG DURING THE DAY
     Route: 042
     Dates: start: 20160903
  2. MCP-RATIOPHARM SF 10 MG/2 ML INJEKTIONSLOESUNG [Suspect]
     Active Substance: METOCLOPRAMIDE
     Dosage: 10 MILLIGRAM DAILY;
     Route: 042
     Dates: start: 201608, end: 20160902

REACTIONS (6)
  - Depressed level of consciousness [Not Recovered/Not Resolved]
  - Muscle spasms [Not Recovered/Not Resolved]
  - Overdose [Unknown]
  - Delusion [Not Recovered/Not Resolved]
  - Fluid retention [Not Recovered/Not Resolved]
  - Chills [Not Recovered/Not Resolved]

NARRATIVE: CASE EVENT DATE: 201609
